FAERS Safety Report 5651436-2 (Version None)
Quarter: 2008Q1

REPORT INFORMATION
  Report Type: 
  Country: None (occurrence: None)
  Receive Date: 20080131
  Receipt Date: 20071114
  Transmission Date: 20080703
  Serious: No
  Sender: FDA-Public Use
  Company Number: US200711003516

PATIENT
  Age: 73 Year
  Sex: Female

DRUGS (1)
  1. BYETTA [Suspect]
     Dosage: 10 UG, UNKNOWN, SUBCUTANEOUS
     Route: 058

REACTIONS (2)
  - BLOOD GLUCOSE DECREASED [None]
  - BODY TEMPERATURE FLUCTUATION [None]
